FAERS Safety Report 5216003-3 (Version None)
Quarter: 2007Q1

REPORT INFORMATION
  Report Type: 
  Country: None (occurrence: None)
  Receive Date: 20061122
  Receipt Date: 20060328
  Transmission Date: 20070707
  Serious: Yes (Other)
  Sender: FDA-Public Use
  Company Number: 2006042902

PATIENT
  Age: 81 Year
  Sex: Female
  Weight: 80.7403 kg

DRUGS (11)
  1. LIPITOR [Suspect]
     Indication: BLOOD CHOLESTEROL INCREASED
     Dosage: 5 MG (10 MG, 1/2 TABLET DAILY), ORAL
     Route: 048
  2. VICODIN [Suspect]
     Indication: BACK PAIN
     Dosage: 5/500 MG (AS NEEDED), ORAL
     Route: 048
  3. LASIX [Concomitant]
  4. PLAVIX [Concomitant]
  5. PRILOSEC [Concomitant]
  6. OSTEO BI-FLEX (CHONDROITIN SULFATE, GLUCOSAMINE HYDROCHLORIDE) [Concomitant]
  7. CENTRUM SILVER (ASCORBIC ACID, CALCIUM, MINERALS NOS, RETINOL,TOCOPHER [Concomitant]
  8. ASPIRIN [Concomitant]
  9. CALCIUM (CALCIUM) [Concomitant]
  10. MICARDIS [Concomitant]
  11. NEXIUM [Concomitant]

REACTIONS (6)
  - ABDOMINAL PAIN UPPER [None]
  - ALOPECIA [None]
  - BACK PAIN [None]
  - CONSTIPATION [None]
  - DYSPEPSIA [None]
  - FLATULENCE [None]
